FAERS Safety Report 8764185 (Version 2)
Quarter: 2013Q4

REPORT INFORMATION
  Report Type: Spontaneous
  Country: US (occurrence: US)
  Receive Date: 20120831
  Receipt Date: 20131101
  Transmission Date: 20140711
  Serious: No
  Sender: FDA-Public Use
  Company Number: US-009507513-1208USA005955

PATIENT
  Sex: Female

DRUGS (5)
  1. ZIOPTAN [Suspect]
     Indication: INTRAOCULAR PRESSURE INCREASED
     Dosage: UNK
     Route: 047
     Dates: start: 201207
  2. PLAVIX [Concomitant]
  3. SOTALOL HYDROCHLORIDE [Concomitant]
  4. SYNTHROID [Concomitant]
  5. PRILOSEC [Concomitant]

REACTIONS (2)
  - Headache [Not Recovered/Not Resolved]
  - Vision blurred [Not Recovered/Not Resolved]
